FAERS Safety Report 4694264-7 (Version None)
Quarter: 2005Q2

REPORT INFORMATION
  Report Type: 
  Country: None (occurrence: None)
  Receive Date: 20050620
  Receipt Date: 20050616
  Transmission Date: 20051028
  Serious: Yes (Life-Threatening)
  Sender: FDA-Public Use
  Company Number: JP-BOEHRINGER INGELHEIM PHARMACEUTICALS, INC.-2005-BP-10211NB

PATIENT

DRUGS (1)
  1. PERSANTINE AMPULES [Suspect]
     Indication: CARDIAC STRESS TEST
     Route: 042
     Dates: start: 20050615

REACTIONS (2)
  - ATRIOVENTRICULAR BLOCK [None]
  - CARDIAC ARREST [None]
